FAERS Safety Report 8155821-9 (Version None)
Quarter: 2012Q1

REPORT INFORMATION
  Report Type: 
  Country: None (occurrence: None)
  Receive Date: 20120222
  Receipt Date: 20120210
  Transmission Date: 20120608
  Serious: Yes (Hospitalization)
  Sender: FDA-Public Use
  Company Number: US-JNJFOC-20120112112

PATIENT
  Sex: Male
  Weight: 86.2 kg

DRUGS (11)
  1. INFLIXIMAB, RECOMBINANT [Suspect]
     Indication: INFLAMMATORY BOWEL DISEASE
     Route: 042
     Dates: start: 20070324, end: 20071015
  2. OMEPRAZOLE [Concomitant]
  3. LEXAPRO [Concomitant]
  4. PROBIOTICS [Concomitant]
  5. RIFAXIMIN [Concomitant]
  6. IMODIUM [Concomitant]
  7. CLARITIN [Concomitant]
  8. ANTIBIOTICS [Concomitant]
     Indication: INFLAMMATORY BOWEL DISEASE
  9. TACROLIMUS [Concomitant]
  10. SINGULAIR [Concomitant]
  11. COMBIVENT [Concomitant]

REACTIONS (3)
  - INFLAMMATORY BOWEL DISEASE [None]
  - OVERGROWTH BACTERIAL [None]
  - DEHYDRATION [None]
